FAERS Safety Report 20256095 (Version 4)
Quarter: 2022Q4

REPORT INFORMATION
  Report Type: Spontaneous
  Country: SE (occurrence: SE)
  Receive Date: 20211230
  Receipt Date: 20221128
  Transmission Date: 20230112
  Serious: Yes (Life-Threatening, Other)
  Sender: FDA-Public Use
  Company Number: SE-MYLANLABS-2021M1096051

PATIENT
  Sex: Female

DRUGS (1)
  1. OGIVRI [Suspect]
     Active Substance: TRASTUZUMAB-DKST
     Indication: Product used for unknown indication
     Dosage: 704 MILLIGRAM, 2 PACKAGE
     Route: 042

REACTIONS (4)
  - Anaphylactic reaction [Unknown]
  - Muscle tightness [Unknown]
  - Back pain [Unknown]
  - Product packaging issue [Unknown]
